FAERS Safety Report 18985179 (Version 1)
Quarter: 2021Q1

REPORT INFORMATION
  Report Type: Report from Study
  Country: US (occurrence: US)
  Receive Date: 20210309
  Receipt Date: 20210309
  Transmission Date: 20210420
  Serious: Yes (Hospitalization)
  Sender: FDA-Public Use
  Company Number: US-GILEAD-2021-0519060

PATIENT
  Age: 25 Year
  Sex: Female

DRUGS (14)
  1. HUMALOG [Concomitant]
     Active Substance: INSULIN LISPRO
  2. LORATADINE. [Concomitant]
     Active Substance: LORATADINE
  3. ALBUTEROL [SALBUTAMOL] [Concomitant]
     Active Substance: ALBUTEROL
  4. CIPROFLOXACIN. [Concomitant]
     Active Substance: CIPROFLOXACIN
  5. HYOSCYAMINE. [Concomitant]
     Active Substance: HYOSCYAMINE
  6. ONDANSETRON [Concomitant]
     Active Substance: ONDANSETRON
  7. SULFAMETHOXAZOLE AND TRIMETHOPRIM [Concomitant]
     Active Substance: SULFAMETHOXAZOLE\TRIMETHOPRIM
  8. TRIKAFTA [Concomitant]
     Active Substance: ELEXACAFTOR\IVACAFTOR\TEZACAFTOR
  9. MONTELUKAST [Concomitant]
     Active Substance: MONTELUKAST SODIUM
  10. FLUTICASONE. [Concomitant]
     Active Substance: FLUTICASONE
  11. LACTULOSE. [Concomitant]
     Active Substance: LACTULOSE
  12. LANTUS [Concomitant]
     Active Substance: INSULIN GLARGINE
  13. AZTREONAM LYSINE [Suspect]
     Active Substance: AZTREONAM LYSINE
     Indication: CYSTIC FIBROSIS LUNG
     Dosage: 75 MG, TID, 28 DAYS ON, 28 DAYS OFF
     Route: 055
     Dates: start: 20130406
  14. SERTRALINE [Concomitant]
     Active Substance: SERTRALINE HYDROCHLORIDE

REACTIONS (2)
  - Obstruction [Unknown]
  - Abdominal pain upper [Unknown]

NARRATIVE: CASE EVENT DATE: 202101
